FAERS Safety Report 7431195-3 (Version None)
Quarter: 2011Q2

REPORT INFORMATION
  Report Type: 
  Country: None (occurrence: None)
  Receive Date: 20110421
  Receipt Date: 20110407
  Transmission Date: 20111010
  Serious: Yes (Life-Threatening, Hospitalization)
  Sender: FDA-Public Use
  Company Number: DE-GENENTECH-316700

PATIENT
  Sex: Female

DRUGS (3)
  1. MABTHERA [Suspect]
     Indication: POLYARTHRITIS
     Dosage: 500 MG, UNK
     Route: 042
     Dates: start: 20080315, end: 20090114
  2. CORTISON [Concomitant]
     Indication: POLYARTHRITIS
     Dosage: UNK
     Route: 048
  3. METHOTREXATE [Concomitant]
     Indication: POLYARTHRITIS
     Dosage: UNK
     Route: 048
     Dates: start: 19950101

REACTIONS (2)
  - LEUKOPENIA [None]
  - THROMBOPHLEBITIS [None]
